FAERS Safety Report 12607408 (Version 2)
Quarter: 2016Q3

REPORT INFORMATION
  Report Type: Report from Study
  Country: US (occurrence: US)
  Receive Date: 20160729
  Receipt Date: 20160818
  Transmission Date: 20161109
  Serious: Yes (Disabling)
  Sender: FDA-Public Use
  Company Number: US-GILEAD-2016-0219558

PATIENT
  Age: 79 Year
  Sex: Male
  Weight: 80.73 kg

DRUGS (15)
  1. SILDENAFIL. [Concomitant]
     Active Substance: SILDENAFIL
  2. DILTIAZEM. [Concomitant]
     Active Substance: DILTIAZEM
  3. GABAPENTIN. [Concomitant]
     Active Substance: GABAPENTIN
  4. OXYGEN. [Concomitant]
     Active Substance: OXYGEN
  5. POTASSIUM CHLORIDE. [Concomitant]
     Active Substance: POTASSIUM CHLORIDE
  6. PRAVASTATIN SODIUM. [Concomitant]
     Active Substance: PRAVASTATIN SODIUM
  7. SPIRONOLACTONE. [Concomitant]
     Active Substance: SPIRONOLACTONE
  8. TORSEMIDE. [Concomitant]
     Active Substance: TORSEMIDE
  9. AMBRISENTAN [Suspect]
     Active Substance: AMBRISENTAN
     Indication: PULMONARY ARTERIAL HYPERTENSION
     Dosage: 5 MG, QD
     Route: 048
     Dates: start: 201605, end: 20160518
  10. CALCITROL                          /00508501/ [Concomitant]
     Active Substance: CALCIUM CARBONATE\ERGOCALCIFEROL\RETINOL
  11. FLUOXETINE [Concomitant]
     Active Substance: FLUOXETINE HYDROCHLORIDE
  12. PREDNISONE. [Concomitant]
     Active Substance: PREDNISONE
  13. GLIPIZIDE. [Concomitant]
     Active Substance: GLIPIZIDE
  14. LANTUS [Concomitant]
     Active Substance: INSULIN GLARGINE
  15. WARFARIN [Concomitant]
     Active Substance: WARFARIN

REACTIONS (3)
  - Hypoxia [Not Recovered/Not Resolved]
  - Dyspnoea [Not Recovered/Not Resolved]
  - Wrong technique in product usage process [Recovered/Resolved]

NARRATIVE: CASE EVENT DATE: 20160504
